FAERS Safety Report 5272847-3 (Version None)
Quarter: 2007Q1

REPORT INFORMATION
  Report Type: 
  Country: None (occurrence: None)
  Receive Date: 20070322
  Receipt Date: 20070312
  Transmission Date: 20070707
  Serious: Yes (Hospitalization)
  Sender: FDA-Public Use
  Company Number: 2007CG00414

PATIENT
  Age: 64 Year
  Sex: Female

DRUGS (13)
  1. CRESTOR [Suspect]
     Indication: HYPERCHOLESTEROLAEMIA
     Route: 048
     Dates: start: 20041122, end: 20060713
  2. OMEPRAZOLE [Concomitant]
     Indication: GASTRIC ULCER
  3. EZETROL [Concomitant]
     Indication: HYPERCHOLESTEROLAEMIA
  4. IRBESARTAN [Concomitant]
     Indication: HYPERTENSION
  5. FLUDEX LP [Concomitant]
     Indication: HYPERTENSION
  6. ACETAMINOPHEN [Concomitant]
     Indication: PAIN
  7. TRAMADOL HCL [Concomitant]
     Indication: PAIN
  8. HEXAQUINE [Concomitant]
  9. FIXICAL D3 [Concomitant]
  10. TRANXENE [Concomitant]
  11. CETIRIZINE HCL [Concomitant]
  12. MEPRONIZINE [Concomitant]
     Indication: INSOMNIA
  13. TRIMEBUTINE [Concomitant]
     Indication: INTESTINAL FUNCTIONAL DISORDER

REACTIONS (1)
  - CRYPTOGENIC ORGANISING PNEUMONIA [None]
